FAERS Safety Report 5295872-5 (Version None)
Quarter: 2007Q2

REPORT INFORMATION
  Report Type: 
  Country: None (occurrence: None)
  Receive Date: 20070413
  Receipt Date: 20070405
  Transmission Date: 20071010
  Serious: Yes (Hospitalization)
  Sender: FDA-Public Use
  Company Number: GB-AVENTIS-200713115GDDC

PATIENT
  Age: 62 Year
  Sex: Female
  Weight: 53 kg

DRUGS (1)
  1. RIFATER [Suspect]
     Indication: PULMONARY TUBERCULOSIS
     Dosage: DOSE: 5 DF
     Route: 048
     Dates: start: 20070313, end: 20070317

REACTIONS (2)
  - BLISTER [None]
  - PRURITUS [None]
